FAERS Safety Report 14605824 (Version 2)
Quarter: 2018Q3

REPORT INFORMATION
  Report Type: Other
  Country: US (occurrence: US)
  Receive Date: 20180306
  Receipt Date: 20180713
  Transmission Date: 20181010
  Serious: No
  Sender: FDA-Public Use
  Company Number: US-INTERCEPT-PMOCA2017001761

PATIENT

DRUGS (17)
  1. OCALIVA [Suspect]
     Active Substance: OBETICHOLIC ACID
     Indication: PRIMARY BILIARY CHOLANGITIS
     Dosage: 5 MG, QW
     Route: 048
     Dates: start: 20171024
  2. RANITIDINE. [Concomitant]
     Active Substance: RANITIDINE
  3. HYOSCYAMINE. [Concomitant]
     Active Substance: HYOSCYAMINE
  4. DILTIAZEM. [Concomitant]
     Active Substance: DILTIAZEM
  5. MELOXICAM. [Concomitant]
     Active Substance: MELOXICAM
  6. AZATHIOPRINE. [Suspect]
     Active Substance: AZATHIOPRINE
     Indication: PROPHYLAXIS AGAINST TRANSPLANT REJECTION
     Dosage: UNK
     Dates: end: 201801
  7. SIMVASTATIN. [Concomitant]
     Active Substance: SIMVASTATIN
  8. CELECOXIB. [Concomitant]
     Active Substance: CELECOXIB
  9. ESTRADIOL. [Concomitant]
     Active Substance: ESTRADIOL
  10. HYDROXYZINE HCL [Concomitant]
     Active Substance: HYDROXYZINE HYDROCHLORIDE
  11. OXYCODONE WITH APAP [Concomitant]
     Active Substance: ACETAMINOPHEN\OXYCODONE HYDROCHLORIDE
  12. UDCA [Concomitant]
     Active Substance: URSODIOL
     Dosage: UNK, BID
  13. TRAMADOL. [Concomitant]
     Active Substance: TRAMADOL
  14. ONDANSETRON [Concomitant]
     Active Substance: ONDANSETRON
  15. FLUOXETINE [Concomitant]
     Active Substance: FLUOXETINE HYDROCHLORIDE
  16. VOLTAREN [Concomitant]
     Active Substance: DICLOFENAC SODIUM
  17. PREDNISONE. [Concomitant]
     Active Substance: PREDNISONE

REACTIONS (9)
  - Squamous cell carcinoma of skin [Unknown]
  - Parathyroid disorder [Unknown]
  - Diarrhoea [Unknown]
  - Amnesia [Not Recovered/Not Resolved]
  - Blood alkaline phosphatase increased [Unknown]
  - Tremor [Not Recovered/Not Resolved]
  - Abdominal distension [Unknown]
  - Vomiting [Unknown]
  - Aspartate aminotransferase increased [Unknown]

NARRATIVE: CASE EVENT DATE: 2017
